FAERS Safety Report 9657821 (Version 1)
Quarter: 2013Q4

REPORT INFORMATION
  Report Type: Spontaneous
  Country: US (occurrence: US)
  Receive Date: 20131030
  Receipt Date: 20131030
  Transmission Date: 20140711
  Serious: No
  Sender: FDA-Public Use
  Company Number: US-PFIZER INC-2013306104

PATIENT
  Age: 69 Year
  Sex: Female
  Weight: 65.76 kg

DRUGS (1)
  1. ZITHROMAX [Suspect]
     Indication: SINUSITIS
     Dosage: 250 MG, UNK
     Dates: start: 20131022

REACTIONS (1)
  - Diarrhoea [Unknown]
